FAERS Safety Report 22203996 (Version 1)
Quarter: 2023Q2

REPORT INFORMATION
  Report Type: Spontaneous
  Country: CA (occurrence: CA)
  Receive Date: 20230412
  Receipt Date: 20230412
  Transmission Date: 20230721
  Serious: Yes (Other)
  Sender: FDA-Public Use
  Company Number: CA-TEVA-2023-CA-2875813

PATIENT
  Age: 42 Year
  Sex: Female

DRUGS (1)
  1. PREDNISONE [Suspect]
     Active Substance: PREDNISONE
     Indication: Product used for unknown indication
     Dosage: DOSE: 30MILLIGRAM (6 PILLS)
     Route: 065
     Dates: start: 20230315, end: 20230318

REACTIONS (8)
  - Haemorrhage [Unknown]
  - Arthralgia [Unknown]
  - Gastrointestinal disorder [Unknown]
  - Secretion discharge [Unknown]
  - Micturition urgency [Unknown]
  - Abdominal pain [Unknown]
  - Muscle spasms [Unknown]
  - Frequent bowel movements [Unknown]

NARRATIVE: CASE EVENT DATE: 20230301
